FAERS Safety Report 10968455 (Version 4)
Quarter: 2015Q2

REPORT INFORMATION
  Report Type: Report from Study
  Country: BR (occurrence: BR)
  Receive Date: 20150330
  Receipt Date: 20150611
  Transmission Date: 20150821
  Serious: Yes (Other)
  Sender: FDA-Public Use
  Company Number: PHHY2015BR035425

PATIENT
  Age: 43 Year
  Sex: Female
  Weight: 71 kg

DRUGS (4)
  1. SANDOSTATIN LAR DEPOT [Suspect]
     Active Substance: OCTREOTIDE ACETATE
     Indication: GROWTH HORMONE-PRODUCING PITUITARY TUMOUR
     Dosage: 1 DF (10MG), EVERY 28 DAYS
     Route: 030
     Dates: start: 2003
  2. SANDOSTATIN LAR DEPOT [Suspect]
     Active Substance: OCTREOTIDE ACETATE
     Dosage: 20 MG, EVERY 28 DAYS
     Route: 030
     Dates: start: 20150410
  3. SANDOSTATIN LAR DEPOT [Suspect]
     Active Substance: OCTREOTIDE ACETATE
     Dosage: 20 MG, EACH 45 DAYS
     Route: 030
     Dates: start: 201412
  4. SANDOSTATIN LAR DEPOT [Suspect]
     Active Substance: OCTREOTIDE ACETATE
     Indication: ACROMEGALY
     Dosage: 1 DF (20MG), EVERY 28 DAYS
     Route: 030
     Dates: start: 201409, end: 201412

REACTIONS (17)
  - Colitis [Recovering/Resolving]
  - Headache [Not Recovered/Not Resolved]
  - Off label use [Unknown]
  - Neoplasm [Recovering/Resolving]
  - Blood growth hormone increased [Not Recovered/Not Resolved]
  - Faeces soft [Recovering/Resolving]
  - Cardiomegaly [Unknown]
  - Vomiting [Recovering/Resolving]
  - Chest pain [Recovering/Resolving]
  - Neoplasm progression [Recovering/Resolving]
  - Nervousness [Unknown]
  - Peripheral swelling [Unknown]
  - Weight decreased [Not Recovered/Not Resolved]
  - Hyperthyroidism [Recovering/Resolving]
  - Food allergy [Not Recovered/Not Resolved]
  - Anxiety [Unknown]
  - Liver disorder [Not Recovered/Not Resolved]

NARRATIVE: CASE EVENT DATE: 201401
